FAERS Safety Report 25039034 (Version 3)
Quarter: 2025Q4

REPORT INFORMATION
  Report Type: Spontaneous
  Country: CA (occurrence: CA)
  Receive Date: 20250305
  Receipt Date: 20251021
  Transmission Date: 20260117
  Serious: Yes (Hospitalization, Other)
  Sender: CELLTRION
  Company Number: CA-PFIZER INC-PV202500023778

PATIENT

DRUGS (2)
  1. INFLIXIMAB [Suspect]
     Active Substance: INFLIXIMAB
     Indication: Colitis ulcerative
     Dosage: 600 MILLIGRAM
     Route: 042
  2. INFLECTRA [Suspect]
     Active Substance: INFLIXIMAB-DYYB
     Indication: Colitis ulcerative
     Dosage: 600 MG, WEEK 0, (INDUCTION WEEKS 0,2,6 THEN EVERY 8 WEEKS)
     Route: 042
     Dates: start: 20250204

REACTIONS (2)
  - Intestinal operation [Unknown]
  - Overdose [Unknown]

NARRATIVE: CASE EVENT DATE: 20250201
